FAERS Safety Report 8837228 (Version 2)
Quarter: 2013Q1

REPORT INFORMATION
  Report Type: Report from Study
  Country: CI (occurrence: CI)
  Receive Date: 20121011
  Receipt Date: 20130218
  Transmission Date: 20140127
  Serious: Yes (Other)
  Sender: FDA-Public Use
  Company Number: CI-GILEAD-2012-0062732

PATIENT
  Age: 36 Year
  Sex: Female

DRUGS (6)
  1. EMTRICITABINE/TENOFOVIR DISOPROXIL FUMARATE [Suspect]
     Indication: HIV INFECTION
     Dosage: 1 DF, QD
     Route: 048
     Dates: start: 20100308
  2. LOPINAVIR W/RITONAVIR [Suspect]
     Indication: HIV INFECTION
     Dosage: UNK UNK, QD
     Route: 048
     Dates: start: 20100308
  3. CO-TRIMOXAZOLE [Suspect]
     Indication: OPPORTUNISTIC INFECTION PROPHYLAXIS
     Dosage: 1 DF, QD
     Route: 048
     Dates: start: 20080811, end: 20111205
  4. UTROGESTAN [Concomitant]
     Indication: PELVIC PAIN
     Dosage: 1 DF, BID
     Route: 048
     Dates: start: 20111208, end: 20111211
  5. UTROGESTAN [Concomitant]
     Indication: ABORTION THREATENED
  6. PROGESTERONE RETARD PHARLON [Concomitant]
     Indication: PRODUCT USED FOR UNKNOWN INDICATION
     Dosage: 500 MG, QD
     Route: 030
     Dates: start: 20111212

REACTIONS (2)
  - Abortion threatened [Recovered/Resolved]
  - Abortion induced [Recovered/Resolved]
